FAERS Safety Report 22594354 (Version 2)
Quarter: 2023Q2

REPORT INFORMATION
  Report Type: Spontaneous
  Country: JP (occurrence: JP)
  Receive Date: 20230613
  Receipt Date: 20230622
  Transmission Date: 20230722
  Serious: No
  Sender: FDA-Public Use
  Company Number: JP-BAXTER-2023BAX023781

PATIENT
  Age: 76 Year
  Sex: Female

DRUGS (1)
  1. CYCLOPHOSPHAMIDE [Suspect]
     Active Substance: CYCLOPHOSPHAMIDE
     Dosage: END DATE: DEC-2022, DOSAGE FORM: INJECTION
     Route: 065

REACTIONS (3)
  - Hepatic steatosis [Unknown]
  - Liver disorder [Unknown]
  - Hepatic function abnormal [Unknown]
